FAERS Safety Report 10476754 (Version 3)
Quarter: 2015Q1

REPORT INFORMATION
  Report Type: Report from Study
  Country: US (occurrence: US)
  Receive Date: 20140925
  Receipt Date: 20150109
  Transmission Date: 20150720
  Serious: Yes (Other)
  Sender: FDA-Public Use
  Company Number: US-ALEXION PHARMACEUTICALS INC-A201102426

PATIENT

DRUGS (3)
  1. EXJADE [Concomitant]
     Active Substance: DEFERASIROX
     Indication: PRODUCT USED FOR UNKNOWN INDICATION
     Dosage: 4 TABS, 3 TABS OF 350 MG EACH
     Route: 065
  2. EXJADE [Concomitant]
     Active Substance: DEFERASIROX
     Dosage: 250 MG, QD
     Route: 065
  3. SOLIRIS [Suspect]
     Active Substance: ECULIZUMAB
     Indication: PAROXYSMAL NOCTURNAL HAEMOGLOBINURIA
     Dosage: UNK UNK, Q2W
     Route: 042
     Dates: start: 2011

REACTIONS (9)
  - Biopsy bone marrow [Unknown]
  - Arthritis [Unknown]
  - Peripheral swelling [Recovering/Resolving]
  - Fatigue [Unknown]
  - Transfusion [Recovering/Resolving]
  - Drug ineffective [Unknown]
  - Quality of life decreased [Unknown]
  - Haemoglobin decreased [Recovering/Resolving]
  - Asthenia [Unknown]

NARRATIVE: CASE EVENT DATE: 20111101
